FAERS Safety Report 10120359 (Version 2)
Quarter: 2014Q2

REPORT INFORMATION
  Report Type: Spontaneous
  Country: CN (occurrence: CN)
  Receive Date: 20140425
  Receipt Date: 20140523
  Transmission Date: 20141212
  Serious: Yes (Hospitalization)
  Sender: FDA-Public Use
  Company Number: CN-JNJFOC-20140413556

PATIENT
  Age: 10 Month
  Sex: Female
  Weight: 9.6 kg

DRUGS (5)
  1. TYLENOL [Suspect]
     Route: 048
  2. TYLENOL [Suspect]
     Indication: PYREXIA
     Route: 048
     Dates: start: 20130812, end: 20130814
  3. AMINOPHENAZONE W/PHENAZONE/BARBITAL [Suspect]
     Indication: PYREXIA
     Route: 030
     Dates: start: 20130812, end: 20130812
  4. CEFACLOR [Suspect]
     Indication: UPPER RESPIRATORY TRACT INFECTION
     Route: 048
     Dates: start: 20130812, end: 20130814
  5. PUDILAN (TCM) [Concomitant]
     Indication: UPPER RESPIRATORY TRACT INFECTION
     Route: 048
     Dates: start: 20130812, end: 20130814

REACTIONS (1)
  - Leukopenia [Recovered/Resolved]
